FAERS Safety Report 4626218-0 (Version None)
Quarter: 2005Q2

REPORT INFORMATION
  Report Type: 
  Country: None (occurrence: None)
  Receive Date: 20050404
  Receipt Date: 20041222
  Transmission Date: 20051028
  Serious: Yes (Death, Hospitalization)
  Sender: FDA-Public Use
  Company Number: CZ-SANOFI-SYNTHELABO-D01200405637

PATIENT
  Sex: Female
  Weight: 65 kg

DRUGS (11)
  1. CLOPIDOGREL BISULFATE [Suspect]
     Indication: ATRIAL FIBRILLATION
     Route: 048
     Dates: start: 20040521
  2. IRBESARTAN [Suspect]
     Indication: ATRIAL FIBRILLATION
     Dosage: 150 MG/DAY FOR 2 WEEKS FOLLOWING BY 300 MG/DAY
     Route: 048
     Dates: start: 20040521
  3. ASPIRIN [Concomitant]
     Indication: ATRIAL FIBRILLATION
     Dosage: 100 MG
     Route: 048
     Dates: start: 20040521
  4. BETALOC [Concomitant]
  5. PRESTARIUM [Concomitant]
  6. FUROSEMIDE [Concomitant]
  7. VEROSPIRON [Concomitant]
  8. FURON [Concomitant]
  9. PRESTARIUM [Concomitant]
  10. CALTRATE [Concomitant]
  11. ESPUMISAN [Concomitant]

REACTIONS (6)
  - BRONCHOPNEUMONIA [None]
  - CARDIOVASCULAR DISORDER [None]
  - FALL [None]
  - HAEMORRHAGIC STROKE [None]
  - OLIGURIA [None]
  - SUBARACHNOID HAEMORRHAGE [None]
